FAERS Safety Report 4554551-X (Version None)
Quarter: 2004Q4

REPORT INFORMATION
  Report Type: 
  Country: None (occurrence: None)
  Receive Date: 20041227
  Receipt Date: 20031209
  Transmission Date: 20050328
  Serious: Yes (Hospitalization)
  Sender: FDA-Public Use
  Company Number: PHEH2003US11285

PATIENT
  Age: 31 Year
  Sex: Female

DRUGS (4)
  1. PARLODEL [Suspect]
     Dosage: 2.5 MG, BID, ORAL
     Route: 048
     Dates: start: 19890213
  2. DRISTAN (CHLORPHENAMINE MALEATE) [Concomitant]
  3. FORMULA 44-D [Concomitant]
  4. ANACIN [Concomitant]

REACTIONS (1)
  - CONVULSION [None]
